FAERS Safety Report 9803800 (Version 1)
Quarter: 2014Q1

REPORT INFORMATION
  Report Type: Spontaneous
  Country: US (occurrence: US)
  Receive Date: 20140108
  Receipt Date: 20140108
  Transmission Date: 20141002
  Serious: No
  Sender: FDA-Public Use
  Company Number: US-GLAXOSMITHKLINE-A1041547A

PATIENT
  Age: 65 Year
  Sex: Female

DRUGS (4)
  1. LOVAZA [Suspect]
     Indication: BLOOD TRIGLYCERIDES INCREASED
     Dosage: 4CAP PER DAY
     Route: 048
     Dates: start: 2008
  2. DILANTIN [Concomitant]
  3. PRAVACHOL [Concomitant]
  4. VENLAFAXINE [Concomitant]

REACTIONS (2)
  - Dyspepsia [Recovered/Resolved]
  - Product quality issue [Unknown]
